FAERS Safety Report 4606036-X (Version None)
Quarter: 2005Q1

REPORT INFORMATION
  Report Type: 
  Country: None (occurrence: None)
  Receive Date: 20050311
  Receipt Date: 20050211
  Transmission Date: 20050727
  Serious: Yes (Other)
  Sender: FDA-Public Use
  Company Number: US-ROCHE-395525

PATIENT
  Age: 48 Year
  Sex: Male
  Weight: 88.5 kg

DRUGS (3)
  1. PEGASYS [Suspect]
     Indication: HEPATITIS C
     Route: 058
     Dates: start: 20050119, end: 20050119
  2. REBETOL [Suspect]
     Indication: HEPATITIS C
     Route: 048
     Dates: start: 20050119, end: 20050119
  3. DILANTIN [Concomitant]

REACTIONS (1)
  - CONVULSION [None]
